FAERS Safety Report 6983905-7 (Version None)
Quarter: 2010Q3

REPORT INFORMATION
  Report Type: 
  Country: None (occurrence: None)
  Receive Date: 20100914
  Receipt Date: 20090304
  Transmission Date: 20110219
  Serious: No
  Sender: FDA-Public Use
  Company Number: US-WYE-H08469409

PATIENT
  Age: 51 Year
  Sex: Male
  Weight: 74.91 kg

DRUGS (2)
  1. ADVIL LIQUI-GELS [Suspect]
     Indication: PAIN
     Route: 048
     Dates: start: 20040101
  2. PROTONIX [Concomitant]

REACTIONS (1)
  - DRUG SCREEN FALSE POSITIVE [None]
